FAERS Safety Report 15754266 (Version 1)
Quarter: 2018Q4

REPORT INFORMATION
  Report Type: Spontaneous
  Country: US (occurrence: US)
  Receive Date: 20181223
  Receipt Date: 20181223
  Transmission Date: 20190205
  Serious: No
  Sender: FDA-Public Use
  Company Number: US-JNJFOC-20181210040

PATIENT
  Age: 68 Year
  Sex: Female
  Weight: 124.74 kg

DRUGS (6)
  1. DYAZIDE [Concomitant]
     Active Substance: HYDROCHLOROTHIAZIDE\TRIAMTERENE
     Route: 048
  2. PREDNISONE. [Concomitant]
     Active Substance: PREDNISONE
     Route: 048
  3. SYNTHROID [Concomitant]
     Active Substance: LEVOTHYROXINE SODIUM
     Route: 048
  4. DYAZIDE [Concomitant]
     Active Substance: HYDROCHLOROTHIAZIDE\TRIAMTERENE
     Route: 048
  5. LIPITOR [Concomitant]
     Active Substance: ATORVASTATIN CALCIUM
     Route: 048
  6. REMICADE [Suspect]
     Active Substance: INFLIXIMAB
     Indication: PUSTULAR PSORIASIS
     Route: 042
     Dates: start: 20170703

REACTIONS (2)
  - Inappropriate schedule of product administration [Unknown]
  - Injection site reaction [Unknown]

NARRATIVE: CASE EVENT DATE: 20181130
